FAERS Safety Report 10718164 (Version 2)
Quarter: 2022Q1

REPORT INFORMATION
  Report Type: Spontaneous
  Country: FR (occurrence: None)
  Receive Date: 20150118
  Receipt Date: 20220120
  Transmission Date: 20220423
  Serious: Yes (Hospitalization)
  Sender: FDA-Public Use
  Company Number: 2015SE04173

PATIENT
  Age: 17520 Day
  Sex: Male

DRUGS (10)
  1. ESOMEPRAZOLE [Suspect]
     Active Substance: ESOMEPRAZOLE
     Route: 048
     Dates: start: 20141105, end: 20141123
  2. PHENYTOIN [Suspect]
     Active Substance: PHENYTOIN
     Dosage: 100.0MG UNKNOWN
     Route: 048
     Dates: start: 20141103, end: 20141123
  3. KEPPRA [Suspect]
     Active Substance: LEVETIRACETAM
     Route: 048
     Dates: start: 20141020, end: 20141103
  4. PRO-DILANTIN [Concomitant]
     Dates: start: 20141031, end: 20141103
  5. CLOBAZAM [Concomitant]
     Active Substance: CLOBAZAM
  6. SOLUPRED [Concomitant]
     Dates: start: 20141103
  7. TEMODAL [Concomitant]
     Active Substance: TEMOZOLOMIDE
  8. PRIMPERAN [Concomitant]
     Active Substance: METOCLOPRAMIDE HYDROCHLORIDE
  9. BACTRIM [Concomitant]
     Active Substance: SULFAMETHOXAZOLE\TRIMETHOPRIM
     Dates: start: 20141120
  10. VIMPAT [Concomitant]
     Active Substance: LACOSAMIDE
     Dates: start: 20141116

REACTIONS (2)
  - Rash maculo-papular [Recovering/Resolving]
  - Drug reaction with eosinophilia and systemic symptoms [Recovering/Resolving]

NARRATIVE: CASE EVENT DATE: 20141121
